FAERS Safety Report 9887964 (Version 2)
Quarter: 2014Q1

REPORT INFORMATION
  Report Type: Report from Study
  Country: US (occurrence: US)
  Receive Date: 20140211
  Receipt Date: 20140307
  Transmission Date: 20141002
  Serious: Yes (Death, Hospitalization, Other)
  Sender: FDA-Public Use
  Company Number: US-TEVA-460787USA

PATIENT
  Sex: Male

DRUGS (5)
  1. CLOZAPINE [Suspect]
     Indication: SCHIZOPHRENIA, PARANOID TYPE
     Route: 048
  2. DIAZEPAM [Concomitant]
  3. FLUOXETINE [Concomitant]
  4. HYDROCODONE [Concomitant]
  5. MORPHINE [Concomitant]

REACTIONS (5)
  - Death [Fatal]
  - Asthenia [Unknown]
  - Dyspnoea [Unknown]
  - Amnesia [Unknown]
  - Laboratory test abnormal [Unknown]
